FAERS Safety Report 8835635 (Version 1)
Quarter: 2012Q4

REPORT INFORMATION
  Report Type: 
  Country: US (occurrence: US)
  Receive Date: 20121011
  Receipt Date: 20121011
  Transmission Date: 20130627
  Serious: Yes (Other)
  Sender: FDA-Public Use
  Company Number: US-JNJFOC-20121004575

PATIENT
  Sex: Female
  Weight: 88.45 kg

DRUGS (4)
  1. XARELTO [Suspect]
     Indication: CEREBROVASCULAR ACCIDENT PROPHYLAXIS
     Route: 048
     Dates: start: 201201
  2. XARELTO [Suspect]
     Indication: ATRIAL FIBRILLATION
     Route: 048
     Dates: start: 201201
  3. MULTIVITAMINS [Concomitant]
     Route: 048
  4. CIMETIDINE [Concomitant]
     Indication: GASTROINTESTINAL DISORDER
     Route: 048

REACTIONS (4)
  - Gastritis haemorrhagic [Not Recovered/Not Resolved]
  - Barrett^s oesophagus [Not Recovered/Not Resolved]
  - Duodenitis [Unknown]
  - Inappropriate schedule of drug administration [Recovered/Resolved]
